FAERS Safety Report 10580153 (Version 2)
Quarter: 2014Q4

REPORT INFORMATION
  Report Type: Spontaneous
  Country: CA (occurrence: CA)
  Receive Date: 20141112
  Receipt Date: 20141208
  Transmission Date: 20150529
  Serious: Yes (Other)
  Sender: FDA-Public Use
  Company Number: PHHY2014CA146094

PATIENT
  Age: 5 Year
  Sex: Female

DRUGS (4)
  1. IRRADIATION [Suspect]
     Active Substance: UNSPECIFIED INGREDIENT
     Indication: NEPHROBLASTOMA
     Route: 065
  2. VINCRISTINE [Concomitant]
     Active Substance: VINCRISTINE
     Indication: NEPHROBLASTOMA
     Route: 065
  3. DACTINOMYCIN [Concomitant]
     Active Substance: DACTINOMYCIN
     Indication: NEPHROBLASTOMA
     Route: 065
  4. DOXORUBICIN [Suspect]
     Active Substance: DOXORUBICIN
     Indication: NEPHROBLASTOMA
     Route: 065

REACTIONS (5)
  - Respiratory distress [Recovered/Resolved]
  - Cardiac disorder [Recovered/Resolved]
  - Pulmonary artery wall hypertrophy [Recovered/Resolved]
  - Tachycardia [Recovered/Resolved]
  - Pulmonary hypertension [Recovered/Resolved]
